FAERS Safety Report 4868408-8 (Version None)
Quarter: 2005Q4

REPORT INFORMATION
  Report Type: 
  Country: None (occurrence: None)
  Receive Date: 20051229
  Receipt Date: 20051201
  Transmission Date: 20060501
  Serious: Yes (Other)
  Sender: FDA-Public Use
  Company Number: DE-GLAXOSMITHKLINE-D0048163A

PATIENT
  Age: 6 Year
  Sex: Male
  Weight: 26 kg

DRUGS (1)
  1. FLUTIDE MITE [Suspect]
     Dosage: 1PUFF TWICE PER DAY
     Route: 065
     Dates: start: 20050401, end: 20051201

REACTIONS (2)
  - DYSPHONIA [None]
  - VOCAL CORD THICKENING [None]
